FAERS Safety Report 9274635 (Version 1)
Quarter: 2013Q2

REPORT INFORMATION
  Report Type: Spontaneous
  Country: US (occurrence: None)
  Receive Date: 20130429
  Receipt Date: 20130429
  Transmission Date: 20140414
  Serious: Yes (Other)
  Sender: FDA-Public Use
  Company Number: ADR-2013-00721

PATIENT
  Age: 52 Year
  Sex: Female

DRUGS (1)
  1. LIORESAL INTRATHECAL (BACLOFEN INJECTION) [Suspect]

REACTIONS (9)
  - Incision site complication [None]
  - Necrosis [None]
  - Infarction [None]
  - Implant site erosion [None]
  - Device extrusion [None]
  - Implant site erythema [None]
  - Implant site haemorrhage [None]
  - Skin atrophy [None]
  - Wound infection [None]
